FAERS Safety Report 8954297 (Version 1)
Quarter: 2012Q4

REPORT INFORMATION
  Report Type: 
  Country: US (occurrence: US)
  Receive Date: 20121210
  Receipt Date: 20121210
  Transmission Date: 20130627
  Serious: No
  Sender: FDA-Public Use
  Company Number: US-009507513-1212USA001905

PATIENT
  Sex: Female

DRUGS (4)
  1. RIBAVIRIN [Suspect]
     Indication: HEPATITIS C
     Dosage: UNK
     Dates: start: 19961004, end: 19980220
  2. RIBAVIRIN [Suspect]
     Dosage: UNK
     Dates: start: 20020104, end: 20020405
  3. RIBAVIRIN [Suspect]
     Dosage: UNK
     Dates: start: 20040102, end: 20040305
  4. RIBAVIRIN [Suspect]
     Dosage: UNK
     Dates: start: 20110701, end: 20111030

REACTIONS (4)
  - Drug ineffective [Unknown]
  - Drug ineffective [Unknown]
  - Drug ineffective [Unknown]
  - Drug ineffective [Unknown]
